FAERS Safety Report 10013726 (Version 1)
Quarter: 2014Q1

REPORT INFORMATION
  Report Type: Spontaneous
  Country: US (occurrence: US)
  Receive Date: 20140316
  Receipt Date: 20140316
  Transmission Date: 20141002
  Serious: Yes (Hospitalization)
  Sender: FDA-Public Use
  Company Number: US-BAYER-2014-036046

PATIENT
  Age: 27 Year
  Sex: Female
  Weight: 81.18 kg

DRUGS (8)
  1. MIRENA [Suspect]
     Indication: CONTRACEPTION
     Dosage: 20 MCG/24HR, CONT
     Route: 015
     Dates: start: 20110823, end: 20110830
  2. XANAX [Concomitant]
  3. VICODIN [Concomitant]
  4. PRENATAL VITAMINS [Concomitant]
     Dosage: UNK
     Route: 048
  5. TORADOL [Concomitant]
     Route: 030
  6. DIAZEPAM [Concomitant]
  7. NORCO [Concomitant]
     Dosage: UNK
     Dates: start: 20110831
  8. DOXYCYCLINE [Concomitant]
     Dosage: UNK

REACTIONS (4)
  - Device dislocation [None]
  - Pain [None]
  - Device issue [None]
  - Depression [None]
